FAERS Safety Report 12532360 (Version 1)
Quarter: 2016Q3

REPORT INFORMATION
  Report Type: Spontaneous
  Country: DE (occurrence: DE)
  Receive Date: 20160706
  Receipt Date: 20160706
  Transmission Date: 20161109
  Serious: Yes (Congenital Anomaly, Other)
  Sender: FDA-Public Use
  Company Number: DE-MYLANLABS-2016M1027378

PATIENT

DRUGS (4)
  1. FOLIO                              /00349401/ [Concomitant]
     Indication: PROPHYLAXIS OF NEURAL TUBE DEFECT
     Dosage: 0.4 MG, QD (0.4 [MG/D ])
     Route: 064
     Dates: start: 20141210, end: 20150911
  2. METHYLDOPA. [Suspect]
     Active Substance: METHYLDOPA
     Indication: HYPERTENSION
     Dosage: 250 MG, TID (750 [MG/D ])
     Route: 064
     Dates: start: 20150213, end: 20150911
  3. CITALOPRAM [Suspect]
     Active Substance: CITALOPRAM HYDROBROMIDE
     Indication: DEPRESSION
     Dosage: UNK (DOSAGE UNKNOWN)
     Route: 064
     Dates: start: 20141210, end: 20150911
  4. TWYNSTA [Suspect]
     Active Substance: AMLODIPINE BESYLATE\TELMISARTAN
     Indication: HYPERTENSION
     Dosage: 40 MG, QD (5 [MG/D ] / 40 [MG/D ])
     Route: 064
     Dates: start: 20141210, end: 20150212

REACTIONS (4)
  - Hypospadias [Not Recovered/Not Resolved]
  - Kinematic imbalances due to suboccipital strain [Recovering/Resolving]
  - Foetal exposure during pregnancy [Unknown]
  - Foot deformity [Recovered/Resolved]

NARRATIVE: CASE EVENT DATE: 20150911
